FAERS Safety Report 18729306 (Version 1)
Quarter: 2021Q1

REPORT INFORMATION
  Report Type: Other
  Country: US (occurrence: US)
  Receive Date: 20210112
  Receipt Date: 20210112
  Transmission Date: 20210419
  Serious: Yes (Other)
  Sender: FDA-Public Use
  Company Number: US-ROCHE-2742249

PATIENT
  Sex: Female

DRUGS (6)
  1. PACLITAXEL. [Suspect]
     Active Substance: PACLITAXEL
     Indication: ENDOMETRIAL CANCER
     Route: 065
  2. IFOSFAMIDE. [Suspect]
     Active Substance: IFOSFAMIDE
     Indication: ENDOMETRIAL CANCER
     Route: 065
  3. CAPECITABINE. [Suspect]
     Active Substance: CAPECITABINE
     Indication: ENDOMETRIAL CANCER
     Route: 065
  4. PACLITAXEL. [Suspect]
     Active Substance: PACLITAXEL
     Indication: ENDOMETRIAL CANCER
     Route: 065
  5. CARBOPLATIN. [Suspect]
     Active Substance: CARBOPLATIN
     Indication: ENDOMETRIAL CANCER
     Route: 065
  6. ADRIAMYCIN [Suspect]
     Active Substance: DOXORUBICIN HYDROCHLORIDE
     Indication: ENDOMETRIAL CANCER
     Route: 065

REACTIONS (19)
  - Diarrhoea [Unknown]
  - Proctalgia [Unknown]
  - Pelvic pain [Unknown]
  - Urinary incontinence [Unknown]
  - Weight decreased [Unknown]
  - Constipation [Unknown]
  - Haematuria [Unknown]
  - Vaginal infection [Unknown]
  - Lymphoedema [Unknown]
  - Intestinal obstruction [Unknown]
  - Vulvovaginal dryness [Unknown]
  - Vaginal discharge [Unknown]
  - Nausea [Unknown]
  - Fatigue [Unknown]
  - Decreased appetite [Unknown]
  - Vomiting [Unknown]
  - Vaginal stricture [Unknown]
  - Urogenital fistula [Unknown]
  - Dysuria [Unknown]
